FAERS Safety Report 23255864 (Version 1)
Quarter: 2023Q4

REPORT INFORMATION
  Report Type: Spontaneous
  Country: US (occurrence: None)
  Receive Date: 20231204
  Receipt Date: 20231204
  Transmission Date: 20240110
  Serious: No
  Sender: FDA-Public Use
  Company Number: US-ARIS GLOBAL-RDH202301-000012

PATIENT
  Age: 70 Year
  Sex: Female

DRUGS (1)
  1. TALICIA [Suspect]
     Active Substance: AMOXICILLIN\OMEPRAZOLE MAGNESIUM\RIFABUTIN
     Indication: Product used for unknown indication
     Route: 048
     Dates: start: 20230123

REACTIONS (2)
  - Nephrolithiasis [Unknown]
  - Chromaturia [Unknown]

NARRATIVE: CASE EVENT DATE: 20230101
